FAERS Safety Report 4637503-0 (Version None)
Quarter: 2005Q2

REPORT INFORMATION
  Report Type: 
  Country: None (occurrence: None)
  Receive Date: 20050328
  Receipt Date: 20050202
  Transmission Date: 20051028
  Serious: No
  Sender: FDA-Public Use
  Company Number: USA031050600

PATIENT
  Age: 23 Year
  Sex: Male
  Weight: 116 kg

DRUGS (1)
  1. STRATTERA [Suspect]
     Indication: ATTENTION DEFICIT/HYPERACTIVITY DISORDER
     Dosage: 40 MG/DAY
     Dates: start: 20050101, end: 20050131

REACTIONS (5)
  - BLEPHAROSPASM [None]
  - FATIGUE [None]
  - FEELING ABNORMAL [None]
  - HEART RATE INCREASED [None]
  - HYPERSOMNIA [None]
